FAERS Safety Report 8084119-2 (Version None)
Quarter: 2012Q1

REPORT INFORMATION
  Report Type: 
  Country: None (occurrence: None)
  Receive Date: 20120128
  Receipt Date: 20110208
  Transmission Date: 20120608
  Serious: No
  Sender: FDA-Public Use
  Company Number: US-ABBOTT-11P-163-0703578-00

PATIENT
  Sex: Male
  Weight: 74.91 kg

DRUGS (6)
  1. FOLIC ACID [Concomitant]
     Indication: VITAMIN SUPPLEMENTATION
     Route: 048
  2. HUMIRA [Suspect]
     Indication: CROHN'S DISEASE
  3. METHOTREXATE [Concomitant]
     Indication: RHEUMATOID ARTHRITIS
     Dosage: 0.6 ML
     Route: 058
  4. HUMIRA [Suspect]
     Indication: RHEUMATOID ARTHRITIS
     Route: 058
     Dates: start: 20090101
  5. HUMIRA [Suspect]
     Indication: COLITIS ULCERATIVE
  6. METHOTREXATE [Concomitant]
     Indication: CROHN'S DISEASE

REACTIONS (2)
  - ARTHRALGIA [None]
  - DRUG EFFECT DECREASED [None]
